FAERS Safety Report 18380817 (Version 1)
Quarter: 2020Q4

REPORT INFORMATION
  Report Type: Spontaneous
  Country: US (occurrence: US)
  Receive Date: 20201009
  Receipt Date: 20201009
  Transmission Date: 20210114
  Serious: Yes (Death)
  Sender: FDA-Public Use
  Company Number: None

PATIENT
  Sex: Male

DRUGS (1)
  1. GABAPENTIN. [Suspect]
     Active Substance: GABAPENTIN

REACTIONS (10)
  - Pancreatic carcinoma [None]
  - Abdominal pain upper [None]
  - Product prescribing error [None]
  - General physical health deterioration [None]
  - Hepatic cancer [None]
  - Incorrect dose administered [None]
  - Accidental overdose [None]
  - Malaise [None]
  - Central nervous system lesion [None]
  - Toxicity to various agents [None]
